FAERS Safety Report 6891694-X (Version None)
Quarter: 2010Q3

REPORT INFORMATION
  Report Type: 
  Country: None (occurrence: None)
  Receive Date: 20100731
  Receipt Date: 20071113
  Transmission Date: 20110219
  Serious: No
  Sender: FDA-Public Use
  Company Number: US-PFIZER INC-2007074779

PATIENT
  Sex: Male

DRUGS (8)
  1. CAVERJECT [Suspect]
     Indication: ERECTILE DYSFUNCTION
     Dates: start: 20070601
  2. LIPITOR [Concomitant]
  3. PLAVIX [Concomitant]
  4. GLIPIZIDE [Concomitant]
  5. LEXAPRO [Concomitant]
  6. METOPROLOL TARTRATE [Concomitant]
  7. METFORMIN HCL [Concomitant]
  8. ALTACE [Concomitant]

REACTIONS (1)
  - DEVICE MALFUNCTION [None]
